FAERS Safety Report 10044979 (Version 2)
Quarter: 2014Q2

REPORT INFORMATION
  Report Type: Spontaneous
  Country: US (occurrence: US)
  Receive Date: 20140328
  Receipt Date: 20140423
  Transmission Date: 20141212
  Serious: No
  Sender: FDA-Public Use
  Company Number: US-009507513-1403USA012340

PATIENT
  Age: 87 Year
  Sex: Female
  Weight: 56.69 kg

DRUGS (3)
  1. OXYTROL FOR WOMEN [Suspect]
     Indication: POLLAKIURIA
     Dosage: UNK, Q4D
     Route: 062
     Dates: start: 201312
  2. OXYTROL FOR WOMEN [Suspect]
     Dosage: UNK, Q4D
     Route: 062
     Dates: start: 201312
  3. COLAZAL [Concomitant]
     Indication: PRODUCT USED FOR UNKNOWN INDICATION
     Dosage: UNK, UNKNOWN

REACTIONS (3)
  - Skin discolouration [Unknown]
  - Drug effect decreased [Unknown]
  - Product adhesion issue [Unknown]
